FAERS Safety Report 10086683 (Version 1)
Quarter: 2014Q2

REPORT INFORMATION
  Report Type: Spontaneous
  Country: GB (occurrence: GB)
  Receive Date: 20140418
  Receipt Date: 20140418
  Transmission Date: 20141212
  Serious: Yes (Other)
  Sender: FDA-Public Use
  Company Number: GB-B.I. PHARMACEUTICALS,INC./RIDGEFIELD-2014-BI-16638UK

PATIENT
  Age: 85 Year
  Sex: Female

DRUGS (5)
  1. PRADAXA [Suspect]
     Indication: ATRIAL FIBRILLATION
     Dosage: 220 MG
     Route: 048
     Dates: start: 20140215, end: 20140303
  2. FUROSEMIDE [Concomitant]
     Dosage: 80 MG
     Route: 065
  3. LEVOTHYROXINE [Concomitant]
     Dosage: 25 MCG
     Route: 065
  4. LEVOTHYROXINE [Concomitant]
     Dosage: 50 MCG
     Route: 065
  5. SIMVASTATIN [Concomitant]
     Dosage: 20 MG
     Route: 065

REACTIONS (3)
  - Burning sensation [Recovered/Resolved]
  - Glomerular filtration rate decreased [Not Recovered/Not Resolved]
  - Dysphagia [Recovered/Resolved]
